FAERS Safety Report 13313232 (Version 2)
Quarter: 2017Q1

REPORT INFORMATION
  Report Type: Spontaneous
  Country: US (occurrence: US)
  Receive Date: 20170309
  Receipt Date: 20170322
  Transmission Date: 20170428
  Serious: No
  Sender: FDA-Public Use
  Company Number: US-TAIHO ONCOLOGY INC-EU-2017-00414

PATIENT
  Sex: Female
  Weight: 75.64 kg

DRUGS (1)
  1. LONSURF [Suspect]
     Active Substance: TIPIRACIL HYDROCHLORIDE\TRIFLURIDINE
     Indication: RECTAL CANCER
     Dosage: CYCLE 4
     Route: 048
     Dates: start: 20170112

REACTIONS (4)
  - Central nervous system lesion [Unknown]
  - Confusional state [Unknown]
  - Fatigue [Unknown]
  - White blood cell count decreased [Unknown]
